FAERS Safety Report 5940749-2 (Version None)
Quarter: 2008Q4

REPORT INFORMATION
  Report Type: 
  Country: None (occurrence: None)
  Receive Date: 20081030
  Receipt Date: 20081016
  Transmission Date: 20090506
  Serious: Yes (Life-Threatening)
  Sender: FDA-Public Use
  Company Number: TCI2008A05111

PATIENT
  Age: 56 Year
  Sex: Male

DRUGS (5)
  1. ACTOS [Suspect]
     Indication: TYPE 2 DIABETES MELLITUS
     Dosage: 30 MG (30 MG, 1 IN 1 D) PER ORAL
     Route: 048
     Dates: start: 20080919, end: 20081002
  2. MICARDIS [Suspect]
     Indication: HYPERTENSION
     Dosage: 20 MG (20 MG, 1 IN 1 D) PER ORAL
     Route: 048
     Dates: start: 20080919, end: 20081002
  3. NOVORAPID 300 (INSULIN ASPART) [Concomitant]
  4. LANTUS [Concomitant]
  5. NOVORAPID 30MIX (INSULIN ASPART) [Concomitant]

REACTIONS (2)
  - RED BLOOD CELL COUNT DECREASED [None]
  - WHITE BLOOD CELL COUNT DECREASED [None]
